FAERS Safety Report 22245746 (Version 2)
Quarter: 2023Q2

REPORT INFORMATION
  Report Type: Report from Study
  Country: JP (occurrence: JP)
  Receive Date: 20230424
  Receipt Date: 20230614
  Transmission Date: 20230721
  Serious: Yes (Death, Other)
  Sender: FDA-Public Use
  Company Number: JP-SERVIER-S23003938

PATIENT
  Age: 75 Year
  Sex: Female
  Weight: 43.6 kg

DRUGS (16)
  1. ONIVYDE [Suspect]
     Active Substance: IRINOTECAN HYDROCHLORIDE
     Indication: Pancreatic carcinoma
     Dosage: 34.4 MG/M2
     Route: 065
     Dates: start: 20220418, end: 20220418
  2. ONIVYDE [Suspect]
     Active Substance: IRINOTECAN HYDROCHLORIDE
     Dosage: 34.4 MG/M2
     Route: 065
     Dates: start: 20220506, end: 20220506
  3. ONIVYDE [Suspect]
     Active Substance: IRINOTECAN HYDROCHLORIDE
     Dosage: 35.2 MG/M2
     Route: 065
     Dates: start: 20220524, end: 20220524
  4. ONIVYDE [Suspect]
     Active Substance: IRINOTECAN HYDROCHLORIDE
     Dosage: 35.5 MG/M2
     Route: 065
     Dates: start: 20220607, end: 20220607
  5. LEVOLEUCOVORIN CALCIUM [Concomitant]
     Active Substance: LEVOLEUCOVORIN CALCIUM
     Indication: Pancreatic carcinoma
     Dosage: 199.4 MG/M2
     Dates: start: 20220418, end: 20220418
  6. LEVOLEUCOVORIN CALCIUM [Concomitant]
     Active Substance: LEVOLEUCOVORIN CALCIUM
     Dosage: 192.6 MG/M2
     Dates: start: 20220506, end: 20220506
  7. LEVOLEUCOVORIN CALCIUM [Concomitant]
     Active Substance: LEVOLEUCOVORIN CALCIUM
     Dosage: 197.0 MG/M2
     Dates: start: 20220524, end: 20220524
  8. LEVOLEUCOVORIN CALCIUM [Concomitant]
     Active Substance: LEVOLEUCOVORIN CALCIUM
     Dosage: 198.7 MG/M2
     Dates: start: 20220607, end: 20220607
  9. FLUOROURACIL [Concomitant]
     Active Substance: FLUOROURACIL
     Indication: Pancreatic carcinoma
     Dosage: 1169.2 MG/M2
     Dates: start: 20220418, end: 20220419
  10. FLUOROURACIL [Concomitant]
     Active Substance: FLUOROURACIL
     Dosage: 1169.2 MG/M2
     Dates: start: 20220506, end: 20220508
  11. FLUOROURACIL [Concomitant]
     Active Substance: FLUOROURACIL
     Dosage: 1196.3 MG/M2
     Dates: start: 20220524, end: 20220526
  12. FLUOROURACIL [Concomitant]
     Active Substance: FLUOROURACIL
     Dosage: 1206.5 MG/M2
     Dates: start: 20220607, end: 20220609
  13. PALONOSETRON HYDROCHLORIDE [Concomitant]
     Active Substance: PALONOSETRON HYDROCHLORIDE
     Indication: Chemotherapy side effect prophylaxis
     Dosage: 0.75 MG
     Dates: start: 20220418, end: 20220418
  14. PALONOSETRON HYDROCHLORIDE [Concomitant]
     Active Substance: PALONOSETRON HYDROCHLORIDE
     Dosage: UNK MG
     Dates: start: 2022
  15. DEXAMETHASONE SODIUM PHOSPHATE [Concomitant]
     Active Substance: DEXAMETHASONE SODIUM PHOSPHATE
     Indication: Prophylaxis
     Dosage: 6.6 MG
     Dates: start: 20220418, end: 20220418
  16. DECADRON [Concomitant]
     Active Substance: DEXAMETHASONE
     Indication: Prophylaxis
     Dosage: 8 MG
     Dates: start: 20220419

REACTIONS (2)
  - Malignant neoplasm progression [Fatal]
  - Underdose [Recovered/Resolved]

NARRATIVE: CASE EVENT DATE: 20220418
